FAERS Safety Report 10224827 (Version 1)
Quarter: 2014Q2

REPORT INFORMATION
  Report Type: Spontaneous
  Country: US (occurrence: US)
  Receive Date: 20140609
  Receipt Date: 20140609
  Transmission Date: 20141212
  Serious: Yes (Hospitalization)
  Sender: FDA-Public Use
  Company Number: US-GLAXOSMITHKLINE-A1075482A

PATIENT
  Age: 59 Year
  Sex: Male

DRUGS (20)
  1. LOVAZA [Suspect]
     Indication: BLOOD TRIGLYCERIDES INCREASED
     Dosage: 2G UNKNOWN
     Route: 048
     Dates: start: 2012
  2. CLOPIDOGREL [Concomitant]
  3. CARVEDILOL [Concomitant]
  4. DIOVAN HCT [Concomitant]
  5. TEKTURNA [Concomitant]
  6. RANEXA [Concomitant]
  7. HYDRALAZINE [Concomitant]
  8. PANTOPRAZOLE [Concomitant]
  9. METOCLOPRAMIDE [Concomitant]
  10. ATORVASTATIN [Concomitant]
  11. FENOFIBRATE [Concomitant]
  12. NOVOLIN [Concomitant]
  13. LEVEMIR [Concomitant]
  14. JANUVIA [Concomitant]
  15. VITAMIN D [Concomitant]
  16. MONTELUKAST [Concomitant]
  17. HYDROCODONE [Concomitant]
  18. NITROSTAT [Concomitant]
  19. COQ10 [Concomitant]
  20. ASPIRIN [Concomitant]

REACTIONS (1)
  - Coronary arterial stent insertion [Recovering/Resolving]
